FAERS Safety Report 6899246-2 (Version None)
Quarter: 2010Q3

REPORT INFORMATION
  Report Type: 
  Country: None (occurrence: None)
  Receive Date: 20100802
  Receipt Date: 20080305
  Transmission Date: 20110219
  Serious: No
  Sender: FDA-Public Use
  Company Number: US-PFIZER INC-2007088455

PATIENT
  Sex: Female
  Weight: 101.15 kg

DRUGS (6)
  1. LYRICA [Suspect]
     Indication: FIBROMYALGIA
     Dates: start: 20071221, end: 20071223
  2. ZOVIRAX [Concomitant]
  3. NADOLOL [Concomitant]
  4. HYDROCHLOROTHIAZIDE [Concomitant]
  5. MORPHINE [Concomitant]
  6. PREMARIN [Concomitant]

REACTIONS (1)
  - OEDEMA PERIPHERAL [None]
